FAERS Safety Report 17946981 (Version 2)
Quarter: 2022Q3

REPORT INFORMATION
  Report Type: Other
  Country: TR (occurrence: None)
  Receive Date: 20200626
  Receipt Date: 20220707
  Transmission Date: 20221026
  Serious: No
  Sender: FDA-Public Use
  Company Number: TR-ROCHE-2630424

PATIENT
  Age: 30 Year
  Sex: Female
  Weight: 57 kg

DRUGS (16)
  1. OCRELIZUMAB [Suspect]
     Active Substance: OCRELIZUMAB
     Indication: Primary progressive multiple sclerosis
     Dosage: 300 MG/250ML
     Route: 042
     Dates: start: 20190515
  2. OCRELIZUMAB [Suspect]
     Active Substance: OCRELIZUMAB
     Dosage: 300 MG ONCE IN 2 WEEKS THEN 600 MG EVERY 6 MONTHS
     Route: 042
     Dates: start: 20190530
  3. OCRELIZUMAB [Suspect]
     Active Substance: OCRELIZUMAB
     Route: 042
     Dates: start: 20191127
  4. OCRELIZUMAB [Suspect]
     Active Substance: OCRELIZUMAB
     Route: 042
     Dates: start: 20200622
  5. DALFAMPRIDINE [Concomitant]
     Active Substance: DALFAMPRIDINE
     Route: 048
     Dates: start: 20170523
  6. METHYLPREDNISOLONE [Concomitant]
     Active Substance: METHYLPREDNISOLONE
     Indication: Premedication
     Route: 042
     Dates: start: 20190515
  7. METHYLPREDNISOLONE [Concomitant]
     Active Substance: METHYLPREDNISOLONE
     Route: 042
     Dates: start: 20190530
  8. METHYLPREDNISOLONE [Concomitant]
     Active Substance: METHYLPREDNISOLONE
     Route: 042
     Dates: start: 20191127
  9. PHENIRAMINE [Concomitant]
     Active Substance: PHENIRAMINE
     Indication: Premedication
     Route: 042
     Dates: start: 20190515
  10. PHENIRAMINE [Concomitant]
     Active Substance: PHENIRAMINE
     Route: 042
     Dates: start: 20190530
  11. PHENIRAMINE [Concomitant]
     Active Substance: PHENIRAMINE
     Route: 042
     Dates: start: 20191127
  12. PHENIRAMINE [Concomitant]
     Active Substance: PHENIRAMINE
     Route: 042
     Dates: start: 20200622
  13. PAROL [Concomitant]
     Active Substance: ACETAMINOPHEN
     Indication: Premedication
     Route: 048
     Dates: start: 20190515
  14. PAROL [Concomitant]
     Active Substance: ACETAMINOPHEN
     Route: 048
     Dates: start: 20190530
  15. PAROL [Concomitant]
     Active Substance: ACETAMINOPHEN
     Route: 048
     Dates: start: 20191127
  16. PAROL [Concomitant]
     Active Substance: ACETAMINOPHEN
     Route: 048
     Dates: start: 20200622

REACTIONS (1)
  - Oral herpes [Recovered/Resolved]

NARRATIVE: CASE EVENT DATE: 20200524
